FAERS Safety Report 7889000-7 (Version None)
Quarter: 2011Q4

REPORT INFORMATION
  Report Type: 
  Country: None (occurrence: None)
  Receive Date: 20111101
  Receipt Date: 20111028
  Transmission Date: 20120403
  Serious: Yes (Hospitalization)
  Sender: FDA-Public Use
  Company Number: SP05322

PATIENT
  Age: 55 Year
  Sex: Female
  Weight: 44 kg

DRUGS (1)
  1. OSMOPREP [Suspect]
     Indication: BOWEL PREPARATION
     Dosage: ORAL
     Route: 048
     Dates: start: 20110928, end: 20110928

REACTIONS (5)
  - HYPOKALAEMIA [None]
  - TREATMENT NONCOMPLIANCE [None]
  - HYPONATRAEMIA [None]
  - POLYDIPSIA [None]
  - BLOOD ALBUMIN DECREASED [None]
